FAERS Safety Report 8209005-6 (Version None)
Quarter: 2012Q1

REPORT INFORMATION
  Report Type: 
  Country: None (occurrence: None)
  Receive Date: 20120314
  Receipt Date: 20120305
  Transmission Date: 20120608
  Serious: Yes (Hospitalization)
  Sender: FDA-Public Use
  Company Number: US-ACTELION-A-NJ2011-51863

PATIENT

DRUGS (4)
  1. TRACLEER [Suspect]
     Indication: PULMONARY ARTERIAL HYPERTENSION
     Dosage: UNK
     Route: 048
     Dates: start: 20090826
  2. CALCIUM CHANNEL BLOCKERS [Concomitant]
  3. COUMADIN [Concomitant]
  4. REVATIO [Concomitant]

REACTIONS (9)
  - HEART RATE INCREASED [None]
  - FLUID RETENTION [None]
  - DYSPNOEA [None]
  - DIABETES MELLITUS [None]
  - BLOOD PRESSURE INCREASED [None]
  - CONTUSION [None]
  - SYNCOPE [None]
  - ATRIAL FIBRILLATION [None]
  - ANAEMIA [None]
